FAERS Safety Report 16260477 (Version 1)
Quarter: 2019Q2

REPORT INFORMATION
  Report Type: Spontaneous
  Country: US (occurrence: US)
  Receive Date: 20190430
  Receipt Date: 20190430
  Transmission Date: 20190711
  Serious: Yes (Hospitalization)
  Sender: FDA-Public Use
  Company Number: None

PATIENT
  Age: 66 Year
  Sex: Male
  Weight: 90 kg

DRUGS (3)
  1. GENFRAF CAPSULES [Concomitant]
  2. OTEZLA [Suspect]
     Active Substance: APREMILAST
     Indication: PSORIASIS
     Dosage: ?          OTHER FREQUENCY:INCREASING DOSAGE;?
     Route: 048
  3. CLOBETASOL PROPIONATE LOTION [Concomitant]

REACTIONS (2)
  - Pancreatitis [None]
  - Insomnia [None]

NARRATIVE: CASE EVENT DATE: 20190414
